APPROVED DRUG PRODUCT: TECHNESCAN GLUCEPTATE
Active Ingredient: TECHNETIUM TC-99M GLUCEPTATE KIT
Strength: N/A
Dosage Form/Route: INJECTABLE;INJECTION
Application: N018272 | Product #001
Applicant: DRAXIMAGE INC
Approved: Jan 27, 1982 | RLD: No | RS: No | Type: DISCN